FAERS Safety Report 7747447-3 (Version None)
Quarter: 2011Q3

REPORT INFORMATION
  Report Type: 
  Country: None (occurrence: None)
  Receive Date: 20110913
  Receipt Date: 20110831
  Transmission Date: 20111222
  Serious: Yes (Hospitalization, Other)
  Sender: FDA-Public Use
  Company Number: JP-B.I. PHARMACEUTICALS,INC./RIDGEFIELD-2011-BP-19638NB

PATIENT
  Sex: Female
  Weight: 37.2 kg

DRUGS (10)
  1. RABEPRAZOLE SODIUM [Concomitant]
     Dosage: 10 MG
     Route: 048
     Dates: end: 20110728
  2. LASIX [Concomitant]
     Indication: CARDIAC FAILURE CONGESTIVE
     Dosage: 40 MG
     Route: 048
     Dates: end: 20110728
  3. DIGOXIN [Concomitant]
     Indication: ATRIAL FIBRILLATION
     Dosage: 0.08 G
     Route: 048
  4. ENALAPRIL MALEATE [Concomitant]
     Indication: ATRIAL FIBRILLATION
     Dosage: 0.5 MG
     Route: 048
     Dates: end: 20110728
  5. ALDACTONE [Concomitant]
     Indication: CARDIAC FAILURE CONGESTIVE
     Dosage: 25 MG
     Route: 048
     Dates: end: 20110728
  6. ROZEREM [Concomitant]
     Indication: INSOMNIA
     Dosage: 8 MG
     Route: 048
     Dates: end: 20110728
  7. ZOLPIDEM [Concomitant]
     Indication: INSOMNIA
     Dosage: 5 MG
     Route: 048
     Dates: end: 20110728
  8. VERAPAMIL HCL [Concomitant]
     Indication: ATRIAL FIBRILLATION
     Dosage: 40 MG
     Route: 048
  9. ENSURE LIQUID [Concomitant]
     Indication: DECREASED APPETITE
     Route: 048
     Dates: end: 20110728
  10. PRADAXA [Suspect]
     Indication: ATRIAL FIBRILLATION
     Dosage: 220 MG
     Route: 048
     Dates: start: 20110513, end: 20110730

REACTIONS (5)
  - RENAL FAILURE ACUTE [None]
  - URINARY TRACT INFECTION [None]
  - HAEMATURIA [None]
  - DEHYDRATION [None]
  - PNEUMONIA [None]
